FAERS Safety Report 4789546-4 (Version None)
Quarter: 2005Q4

REPORT INFORMATION
  Report Type: 
  Country: None (occurrence: None)
  Receive Date: 20051005
  Receipt Date: 20051005
  Transmission Date: 20060501
  Serious: Yes (Life-Threatening, Hospitalization)
  Sender: FDA-Public Use
  Company Number: None

PATIENT
  Age: 65 Year
  Sex: Male
  Weight: 77 kg

DRUGS (10)
  1. SIROLIMUS [Suspect]
     Indication: HEART TRANSPLANT
     Dosage: 5 MG PO QD    A FEW WEEKS
     Route: 048
  2. INSULIN [Concomitant]
  3. CALCIUM GLUCONATE [Concomitant]
  4. PRAVASTATIN [Concomitant]
  5. AZATHIOPRINE [Concomitant]
  6. FOLIC ACID [Concomitant]
  7. ASPIRIN [Concomitant]
  8. PREDNISONE [Concomitant]
  9. DOCUSATE [Concomitant]
  10. M.V.I. [Concomitant]

REACTIONS (7)
  - CHILLS [None]
  - CONDITION AGGRAVATED [None]
  - COUGH [None]
  - FATIGUE [None]
  - HAEMOPTYSIS [None]
  - HEART TRANSPLANT REJECTION [None]
  - PLATELET COUNT DECREASED [None]
